FAERS Safety Report 14705627 (Version 1)
Quarter: 2018Q2

REPORT INFORMATION
  Report Type: Report from Study
  Country: CN (occurrence: CN)
  Receive Date: 20180402
  Receipt Date: 20180402
  Transmission Date: 20180711
  Serious: Yes (Death)
  Sender: FDA-Public Use
  Company Number: PHHY2018CN057061

PATIENT
  Age: 76 Year
  Sex: Female

DRUGS (1)
  1. ACLASTA [Suspect]
     Active Substance: ZOLEDRONIC ACID
     Indication: OSTEOPOROSIS POSTMENOPAUSAL
     Dosage: 5 MG, UNK
     Route: 041
     Dates: start: 20150610

REACTIONS (1)
  - Death [Fatal]
